FAERS Safety Report 10728790 (Version 1)
Quarter: 2015Q1

REPORT INFORMATION
  Report Type: Spontaneous
  Country: US (occurrence: None)
  Receive Date: 20150120
  Receipt Date: 20150120
  Transmission Date: 20150721
  Serious: Yes (Hospitalization)
  Sender: FDA-Public Use
  Company Number: None

PATIENT
  Age: 28 Year
  Sex: Female
  Weight: 77.11 kg

DRUGS (1)
  1. RHOGAM [Suspect]
     Active Substance: HUMAN RHO(D) IMMUNE GLOBULIN
     Dosage: 2 DOSES, INTO A VEIN

REACTIONS (6)
  - Cyanosis [None]
  - Tremor [None]
  - Chills [None]
  - Bradycardia [None]
  - Haemolysis [None]
  - Pyrexia [None]

NARRATIVE: CASE EVENT DATE: 20140402
